FAERS Safety Report 4589289-6 (Version None)
Quarter: 2005Q1

REPORT INFORMATION
  Report Type: 
  Country: None (occurrence: None)
  Receive Date: 20050216
  Receipt Date: 20050203
  Transmission Date: 20050727
  Serious: Yes (Hospitalization)
  Sender: FDA-Public Use
  Company Number: 2004098207

PATIENT
  Age: 56 Year
  Sex: Female

DRUGS (10)
  1. EPIRUBICIN [Suspect]
     Indication: BREAST CANCER
     Dosage: (150 MG, EVERY 21 DAYS ), INTRAVENOUS
     Route: 042
     Dates: start: 20041108, end: 20041108
  2. DOCETAXEL (DOCETAXEL) [Suspect]
     Indication: BREAST CANCER
     Dosage: (150 MG, EVERY 21 DAYS), INTRAVENOUS
     Route: 042
     Dates: start: 20041108, end: 20041108
  3. CYCLOPHOSPHAMIDE [Suspect]
     Indication: BREAST CANCER
     Dosage: (1000  MG , EVERY 21 DAYS), INTRAVENOUS
     Route: 042
     Dates: start: 20041108, end: 20041108
  4. DEXAMETHASONE [Suspect]
     Indication: ILL-DEFINED DISORDER
     Dosage: (12 MG AS NECESSARY), INTRAVENOUS
     Route: 042
     Dates: start: 20040816
  5. PROCHLORPERAZINE EDISYLATE [Concomitant]
  6. ONDANSETRON HCL [Concomitant]
  7. FUROSEMIDE [Concomitant]
  8. GRANISETRON (GRANISETRON) [Concomitant]
  9. DEXAMETHASONE [Concomitant]
  10. DARBEPOETIN ALFA (DARBEPOETIN ALFA) [Concomitant]

REACTIONS (5)
  - ASTHENIA [None]
  - BLOOD PRESSURE DIASTOLIC DECREASED [None]
  - HEART RATE INCREASED [None]
  - HYPERGLYCAEMIA [None]
  - RESPIRATORY RATE INCREASED [None]
